FAERS Safety Report 22047305 (Version 1)
Quarter: 2023Q1

REPORT INFORMATION
  Report Type: Other
  Country: PE (occurrence: None)
  Receive Date: 20230301
  Receipt Date: 20230301
  Transmission Date: 20230418
  Serious: Yes (Hospitalization)
  Sender: FDA-Public Use
  Company Number: PE-ROCHE-3284380

PATIENT
  Age: 3 Year
  Sex: Male

DRUGS (1)
  1. EVRYSDI [Suspect]
     Active Substance: RISDIPLAM
     Indication: Spinal muscular atrophy
     Dosage: LAST START OF THERAPY ON 17/OCT/2022 APPROX, FOR A MONTH,?2.03MG. 2,7ML / DAY
     Route: 065

REACTIONS (1)
  - Aspiration [Unknown]

NARRATIVE: CASE EVENT DATE: 20230101
